FAERS Safety Report 17193162 (Version 2)
Quarter: 2020Q1

REPORT INFORMATION
  Report Type: Report from Study
  Country: RO (occurrence: RO)
  Receive Date: 20191223
  Receipt Date: 20200102
  Transmission Date: 20200409
  Serious: Yes (Death, Life-Threatening)
  Sender: FDA-Public Use
  Company Number: RO-EMD SERONO-9137204

PATIENT
  Age: 54 Year
  Sex: Male

DRUGS (5)
  1. THIAMINE HYDROCHLORIDE. [Concomitant]
     Active Substance: THIAMINE HYDROCHLORIDE
     Indication: DECREASED APPETITE
     Route: 042
     Dates: start: 20191205
  2. PYRIDOXINE HYDROCHLORIDE. [Concomitant]
     Active Substance: PYRIDOXINE HYDROCHLORIDE
     Indication: DECREASED APPETITE
     Dates: start: 20191205
  3. FENTANYL. [Concomitant]
     Active Substance: FENTANYL
     Indication: PAIN
     Dosage: PATCH
     Route: 062
     Dates: start: 20191211
  4. AVELUMAB [Suspect]
     Active Substance: AVELUMAB
     Indication: NEOPLASM MALIGNANT
     Route: 042
     Dates: start: 20191120, end: 20191204
  5. DEBIO 1143 [Suspect]
     Active Substance: AT-406
     Indication: NEOPLASM MALIGNANT
     Dosage: 200 MG 10 DAYS EVERY 2 WEEKS/ 28 DAY CYCLE
     Route: 048
     Dates: start: 20191120, end: 20191213

REACTIONS (3)
  - Sepsis [Not Recovered/Not Resolved]
  - Disease progression [Fatal]
  - Hepatic failure [Not Recovered/Not Resolved]

NARRATIVE: CASE EVENT DATE: 20191215
